FAERS Safety Report 4383327-1 (Version None)
Quarter: 2004Q2

REPORT INFORMATION
  Report Type: 
  Country: None (occurrence: None)
  Receive Date: 20040618
  Receipt Date: 20040604
  Transmission Date: 20050107
  Serious: Yes (Other)
  Sender: FDA-Public Use
  Company Number: JP-JNJFOC-20040603402

PATIENT
  Age: 36 Year
  Sex: Male

DRUGS (5)
  1. RISPERDAL [Suspect]
     Indication: SCHIZOPHRENIA
     Dosage: 6 MG, 1 IN 1 DAY, ORAL
     Route: 048
     Dates: start: 20030723, end: 20030828
  2. NITRAZEPAM [Concomitant]
  3. AMOBARBITAL (AMOBARBITAL) [Concomitant]
  4. BROMVALERYLUREA (BROMISOVAL) [Concomitant]
  5. BIPERIDEN HYDROCHLORIDE TAB [Concomitant]

REACTIONS (1)
  - PLATELET COUNT INCREASED [None]
